FAERS Safety Report 22281897 (Version 3)
Quarter: 2023Q2

REPORT INFORMATION
  Report Type: Other
  Country: GB (occurrence: None)
  Receive Date: 20230504
  Receipt Date: 20230619
  Transmission Date: 20230721
  Serious: Yes (Hospitalization)
  Sender: FDA-Public Use
  Company Number: GB-ROCHE-3342884

PATIENT
  Age: 68 Year
  Sex: Female

DRUGS (19)
  1. PERTUZUMAB [Suspect]
     Active Substance: PERTUZUMAB
     Indication: HER2 positive breast cancer
     Dosage: CYCLE 1
     Route: 065
     Dates: start: 20160523, end: 20160523
  2. PERTUZUMAB [Suspect]
     Active Substance: PERTUZUMAB
     Dosage: CYCLE 5
     Route: 042
     Dates: start: 20160615, end: 20160914
  3. PERTUZUMAB [Suspect]
     Active Substance: PERTUZUMAB
     Dosage: PLANNED NUMBER OF CYCLES COMPLETED
     Route: 042
     Dates: start: 20161026, end: 20170503
  4. TRASTUZUMAB [Suspect]
     Active Substance: TRASTUZUMAB
     Indication: HER2 positive breast cancer
     Dosage: SUBSEQUENT DOSE OF  INTRAVENOUSLY TRASTUZUMAB 399 MG, EVERY THREE WEEK WAS ADMINISTERED ON 15/JUN/20
     Route: 041
     Dates: start: 20160524, end: 20170412
  5. CAPECITABINE [Suspect]
     Active Substance: CAPECITABINE
     Indication: HER2 positive breast cancer
     Dosage: SUBSEQUENT DOSE OF  ORALLY CAPECITABINE 1650 MG, TWICE DAILY WAS ADMINISTERED ON 31/JAN/2018 TO 07/N
     Route: 048
     Dates: start: 20170905, end: 20210427
  6. ADO-TRASTUZUMAB EMTANSINE [Suspect]
     Active Substance: ADO-TRASTUZUMAB EMTANSINE
     Indication: HER2 positive breast cancer
     Route: 065
     Dates: start: 20170524, end: 20170816
  7. DOCETAXEL [Suspect]
     Active Substance: DOCETAXEL
     Indication: HER2 positive breast cancer
     Dosage: CYCLE 1
     Route: 042
     Dates: start: 20160524, end: 20160524
  8. DOCETAXEL [Suspect]
     Active Substance: DOCETAXEL
     Dosage: CYCLE 1
     Route: 042
     Dates: start: 20160615, end: 20160615
  9. DOCETAXEL [Suspect]
     Active Substance: DOCETAXEL
     Dosage: CYCLE 7
     Route: 042
     Dates: start: 20160706, end: 20161026
  10. LETROZOLE [Suspect]
     Active Substance: LETROZOLE
     Indication: HER2 positive breast cancer
     Route: 048
     Dates: start: 20211012
  11. CALCIUM CARBONATE\CHOLECALCIFEROL [Concomitant]
     Active Substance: CALCIUM CARBONATE\CHOLECALCIFEROL
     Route: 048
     Dates: start: 20170117
  12. DENOSUMAB [Concomitant]
     Active Substance: DENOSUMAB
     Indication: Metastases to bone
     Route: 042
     Dates: start: 20160523
  13. TINZAPARIN [Concomitant]
     Active Substance: TINZAPARIN
     Indication: Thrombosis
     Dosage: 4500 U
     Route: 058
     Dates: start: 20181127, end: 20181130
  14. DOMPERIDONE [Concomitant]
     Active Substance: DOMPERIDONE
     Indication: Nausea
     Route: 048
     Dates: end: 20211125
  15. LOPERAMIDE [Concomitant]
     Active Substance: LOPERAMIDE
     Indication: Diarrhoea
     Route: 048
     Dates: start: 20170905, end: 20200225
  16. ZOLEDRONIC ACID [Concomitant]
     Active Substance: ZOLEDRONIC ACID
     Indication: Metastases to bone
     Route: 042
     Dates: start: 20170926, end: 20200225
  17. DEXAMETHASONE [Concomitant]
     Active Substance: DEXAMETHASONE
     Dosage: BID FOR 3 DAYS, START DAY BEFORE CHEMO
     Route: 048
     Dates: start: 20160523, end: 20161004
  18. ONDANSETRON [Concomitant]
     Active Substance: ONDANSETRON
     Indication: Nausea
     Dates: start: 20160524, end: 20201026
  19. ONDANSETRON [Concomitant]
     Active Substance: ONDANSETRON
     Route: 048
     Dates: start: 20160523

REACTIONS (1)
  - Urinary tract infection [Recovered/Resolved]

NARRATIVE: CASE EVENT DATE: 20230301
